FAERS Safety Report 6029702-0 (Version None)
Quarter: 2009Q1

REPORT INFORMATION
  Report Type: 
  Country: None (occurrence: None)
  Receive Date: 20090107
  Receipt Date: 20090105
  Transmission Date: 20090719
  Serious: Yes (Other)
  Sender: FDA-Public Use
  Company Number: PT-BRISTOL-MYERS SQUIBB COMPANY-14461156

PATIENT
  Age: 65 Year
  Sex: Female

DRUGS (2)
  1. REYATAZ [Suspect]
     Indication: HIV INFECTION
     Dates: start: 20080601
  2. TRUVADA [Suspect]
     Indication: HIV INFECTION
     Dates: start: 20080601

REACTIONS (4)
  - DYSPHAGIA [None]
  - DYSPHASIA [None]
  - RASH [None]
  - SKIN TOXICITY [None]
